FAERS Safety Report 5020553-2 (Version None)
Quarter: 2006Q2

REPORT INFORMATION
  Report Type: 
  Country: None (occurrence: None)
  Receive Date: 20060607
  Receipt Date: 20060529
  Transmission Date: 20061013
  Serious: Yes (Hospitalization)
  Sender: FDA-Public Use
  Company Number: CA-ABBOTT-06P-028-0334853-00

PATIENT
  Sex: Female

DRUGS (2)
  1. HUMIRA [Suspect]
     Indication: DRUG USE FOR UNKNOWN INDICATION
     Route: 058
     Dates: start: 20060105
  2. HUMIRA [Suspect]
     Dates: start: 20060504, end: 20060518

REACTIONS (5)
  - ABDOMINAL PAIN [None]
  - BENIGN NEOPLASM OF THYROID GLAND [None]
  - NAUSEA [None]
  - RECTAL HAEMORRHAGE [None]
  - STOMACH DISCOMFORT [None]
